FAERS Safety Report 6274082-9 (Version None)
Quarter: 2009Q3

REPORT INFORMATION
  Report Type: 
  Country: None (occurrence: None)
  Receive Date: 20090720
  Receipt Date: 20090707
  Transmission Date: 20100115
  Serious: Yes (Other)
  Sender: FDA-Public Use
  Company Number: PHHY2009HU27837

PATIENT
  Age: 65 Year
  Sex: Female

DRUGS (3)
  1. EXFORGE [Suspect]
     Dosage: UNK
     Dates: end: 20080502
  2. INDAPAMIDE [Concomitant]
     Dosage: 1.5 MG, UNK
  3. NOOTROPIL [Concomitant]

REACTIONS (5)
  - BLOOD PRESSURE INADEQUATELY CONTROLLED [None]
  - ERYTHEMA [None]
  - EYELID OEDEMA [None]
  - PAIN IN EXTREMITY [None]
  - VISION BLURRED [None]
